FAERS Safety Report 5375475-4 (Version None)
Quarter: 2007Q2

REPORT INFORMATION
  Report Type: 
  Country: None (occurrence: None)
  Receive Date: 20070629
  Receipt Date: 20070622
  Transmission Date: 20071010
  Serious: Yes (Hospitalization)
  Sender: FDA-Public Use
  Company Number: US-PFIZER INC-2007046045

PATIENT
  Sex: Male
  Weight: 83 kg

DRUGS (8)
  1. SUTENT [Suspect]
     Indication: METASTATIC RENAL CELL CARCINOMA
     Route: 048
  2. NORVASC [Concomitant]
     Route: 048
  3. VALSARTAN [Concomitant]
     Route: 048
  4. ZOLOFT [Concomitant]
     Route: 048
  5. VITAMIN CAP [Concomitant]
     Route: 048
  6. ECOTRIN [Concomitant]
     Route: 048
     Dates: end: 20070604
  7. NORVASC [Concomitant]
     Route: 048
     Dates: start: 20070531, end: 20070604
  8. NORVASC [Concomitant]
     Route: 048
     Dates: start: 20070604

REACTIONS (3)
  - EPISTAXIS [None]
  - GASTRODUODENITIS [None]
  - VIRAL INFECTION [None]
